FAERS Safety Report 16961959 (Version 1)
Quarter: 2019Q4

REPORT INFORMATION
  Report Type: Spontaneous
  Country: US (occurrence: US)
  Receive Date: 20190906
  Receipt Date: 20190906
  Transmission Date: 20200122
  Serious: Yes (Other)
  Sender: FDA-Public Use
  Company Number: None

PATIENT
  Age: 55 Year
  Sex: Female

DRUGS (16)
  1. WARFARIN [Concomitant]
     Active Substance: WARFARIN
  2. PREDNISONE. [Concomitant]
     Active Substance: PREDNISONE
  3. DARATUMUMB [Concomitant]
     Active Substance: DARATUMUMAB
  4. VENLAFAXINE [Concomitant]
     Active Substance: VENLAFAXINE HYDROCHLORIDE
  5. AMBRISENTAN 10MG TABLETS 30/BO: 10MG [Suspect]
     Active Substance: AMBRISENTAN
     Indication: PULMONARY ARTERIAL HYPERTENSION
     Route: 048
     Dates: start: 201806
  6. HYDROMORPHONE [Concomitant]
     Active Substance: HYDROMORPHONE
  7. ZOLPIDEM [Concomitant]
     Active Substance: ZOLPIDEM TARTRATE
  8. DEXAMETHASONE. [Concomitant]
     Active Substance: DEXAMETHASONE
  9. DULOXETINE. [Concomitant]
     Active Substance: DULOXETINE
  10. LOSARTAN. [Concomitant]
     Active Substance: LOSARTAN
  11. NORCO [Concomitant]
     Active Substance: ACETAMINOPHEN\HYDROCODONE BITARTRATE
  12. POTASSIUM CHLORIDE. [Concomitant]
     Active Substance: POTASSIUM CHLORIDE
  13. HYDRO [Concomitant]
  14. TORSEMIDE. [Concomitant]
     Active Substance: TORSEMIDE
  15. LORAZEPAM. [Concomitant]
     Active Substance: LORAZEPAM
  16. ACYCLOVIR. [Concomitant]
     Active Substance: ACYCLOVIR

REACTIONS (2)
  - Dyspnoea [None]
  - Weight increased [None]

NARRATIVE: CASE EVENT DATE: 20190901
